FAERS Safety Report 25032752 (Version 3)
Quarter: 2025Q3

REPORT INFORMATION
  Report Type: Spontaneous
  Country: BR (occurrence: BR)
  Receive Date: 20250303
  Receipt Date: 20250714
  Transmission Date: 20251020
  Serious: Yes (Life-Threatening, Other)
  Sender: BIOMARIN
  Company Number: BR-BIOMARINAP-BR-2025-164235

PATIENT
  Age: 31 Year
  Sex: Female
  Weight: 26 kg

DRUGS (5)
  1. VIMIZIM [Suspect]
     Active Substance: ELOSULFASE ALFA
     Indication: Mucopolysaccharidosis IV
     Dosage: UNK, QW
     Dates: start: 202409
  2. VIMIZIM [Suspect]
     Active Substance: ELOSULFASE ALFA
     Indication: Pain
     Dosage: UNK, QW
  3. VIMIZIM [Suspect]
     Active Substance: ELOSULFASE ALFA
     Dosage: 52 MILLIGRAM, QW
     Dates: start: 20240912
  4. VIMIZIM [Suspect]
     Active Substance: ELOSULFASE ALFA
     Dosage: UNK, QW
     Dates: start: 202305
  5. CARVEDILOL [Concomitant]
     Active Substance: CARVEDILOL
     Indication: Product used for unknown indication

REACTIONS (18)
  - Hypoxia [Recovered/Resolved]
  - Syncope [Recovered/Resolved]
  - Salivary hypersecretion [Recovered/Resolved]
  - Transaminases increased [Not Recovered/Not Resolved]
  - Generalised oedema [Unknown]
  - Respiratory fatigue [Not Recovered/Not Resolved]
  - Sleep apnoea syndrome [Unknown]
  - Aortic valve incompetence [Unknown]
  - Heart rate increased [Unknown]
  - Vomiting [Unknown]
  - Abdominal pain [Unknown]
  - Nausea [Unknown]
  - Joint dislocation [Unknown]
  - Sinus tachycardia [Unknown]
  - Cyanosis [Unknown]
  - Influenza like illness [Unknown]
  - Amylase increased [Recovered/Resolved]
  - Off label use [Unknown]

NARRATIVE: CASE EVENT DATE: 20240101
